FAERS Safety Report 5340389-2 (Version None)
Quarter: 2007Q2

REPORT INFORMATION
  Report Type: 
  Country: None (occurrence: None)
  Receive Date: 20070531
  Receipt Date: 20070521
  Transmission Date: 20071010
  Serious: Yes (Other)
  Sender: FDA-Public Use
  Company Number: AU-SANOFI-SYNTHELABO-A01200705468

PATIENT
  Age: 32 Year
  Sex: Female

DRUGS (1)
  1. STILNOX [Suspect]
     Indication: SLEEP DISORDER
     Route: 048
     Dates: start: 20040101, end: 20060401

REACTIONS (3)
  - AMNESIA [None]
  - ROAD TRAFFIC ACCIDENT [None]
  - SLEEP WALKING [None]
